FAERS Safety Report 8666321 (Version 4)
Quarter: 2014Q3

REPORT INFORMATION
  Report Type: Report from Study
  Country: IT (occurrence: IT)
  Receive Date: 20120716
  Receipt Date: 20140915
  Transmission Date: 20150326
  Serious: Yes (Hospitalization, Other)
  Sender: FDA-Public Use
  Company Number: PHHO2012IT010364

PATIENT
  Age: 19 Year
  Sex: Female
  Weight: 58 kg

DRUGS (5)
  1. AFINITOR [Suspect]
     Active Substance: EVEROLIMUS
     Dosage: 7.5 MG, UNK
     Route: 048
     Dates: start: 20111130, end: 20111219
  2. AFINITOR [Suspect]
     Active Substance: EVEROLIMUS
     Dosage: 10 MG, UNK
     Route: 048
     Dates: start: 20111220, end: 20120711
  3. VALPROIC ACID. [Concomitant]
     Active Substance: VALPROIC ACID
     Indication: EPILEPSY
     Dosage: 500 MG+800 MG
  4. CARBAMAZEPINE. [Concomitant]
     Active Substance: CARBAMAZEPINE
     Indication: EPILEPSY
     Dosage: 400 MG, BID
     Route: 048
  5. AFINITOR [Suspect]
     Active Substance: EVEROLIMUS
     Indication: ASTROCYTOMA, LOW GRADE
     Dosage: 5 MG, UNK
     Route: 048
     Dates: start: 20111108, end: 20111129

REACTIONS (7)
  - Hypercholesterolaemia [Unknown]
  - Gingival inflammation [Unknown]
  - Dental caries [Unknown]
  - Hyperkalaemia [Unknown]
  - Skin lesion [Unknown]
  - Ovarian cyst [Recovered/Resolved]
  - Aphthous stomatitis [Unknown]

NARRATIVE: CASE EVENT DATE: 20111113
